FAERS Safety Report 24953365 (Version 1)
Quarter: 2025Q1

REPORT INFORMATION
  Report Type: Report from Study
  Country: US (occurrence: US)
  Receive Date: 20250211
  Receipt Date: 20250211
  Transmission Date: 20250409
  Serious: Yes (Other)
  Sender: NOVARTIS
  Company Number: US-002147023-NVSC2024US216173

PATIENT
  Sex: Female

DRUGS (1)
  1. KESIMPTA [Suspect]
     Active Substance: OFATUMUMAB
     Indication: Relapsing multiple sclerosis
     Route: 065
     Dates: start: 20241030

REACTIONS (8)
  - Neuropathy peripheral [Unknown]
  - Multiple sclerosis relapse [Unknown]
  - Muscle spasms [Not Recovered/Not Resolved]
  - Musculoskeletal stiffness [Unknown]
  - Paraesthesia [Unknown]
  - Influenza like illness [Unknown]
  - Pain [Unknown]
  - Hyperhidrosis [Unknown]
